FAERS Safety Report 26154601 (Version 2)
Quarter: 2025Q4

REPORT INFORMATION
  Report Type: Spontaneous
  Country: US (occurrence: US)
  Receive Date: 20251215
  Receipt Date: 20251217
  Transmission Date: 20260117
  Serious: Yes (Life-Threatening, Hospitalization)
  Sender: CHATTEM
  Company Number: US-OPELLA-2025OHG034808

PATIENT
  Age: 54 Year
  Sex: Female

DRUGS (2)
  1. LIDOCAINE [Suspect]
     Active Substance: LIDOCAINE
     Indication: Pain in extremity
     Route: 061
  2. PHENAZOPYRIDINE [Suspect]
     Active Substance: PHENAZOPYRIDINE
     Indication: Urinary tract infection
     Dosage: DAILY PHENAZOPYRIDINE (AZO)

REACTIONS (4)
  - Methaemoglobinaemia [Recovered/Resolved]
  - Sulphaemoglobinaemia [Recovering/Resolving]
  - Anaemia [Recovering/Resolving]
  - Encephalopathy [Recovering/Resolving]
